FAERS Safety Report 17976671 (Version 2)
Quarter: 2020Q3

REPORT INFORMATION
  Report Type: Spontaneous
  Country: IT (occurrence: IT)
  Receive Date: 20200703
  Receipt Date: 20200714
  Transmission Date: 20201103
  Serious: Yes (Hospitalization, Other)
  Sender: FDA-Public Use
  Company Number: IT-AUROBINDO-AUR-APL-2020-031555

PATIENT
  Age: 51 Year
  Sex: Female

DRUGS (3)
  1. METHYLPREDNISOLONE. [Suspect]
     Active Substance: METHYLPREDNISOLONE
     Indication: INFLAMMATION
     Dosage: 1 GRAM, DAILY
     Route: 065
  2. MIRTAZAPINE. [Suspect]
     Active Substance: MIRTAZAPINE
     Indication: PROGRESSIVE MULTIFOCAL LEUKOENCEPHALOPATHY
     Dosage: 30 MILLIGRAM, ONCE A DAY
     Route: 065
  3. MEFLOQUINE [Suspect]
     Active Substance: MEFLOQUINE
     Indication: PROGRESSIVE MULTIFOCAL LEUKOENCEPHALOPATHY
     Dosage: 750 MILLIGRAM, DAILY (250 MG/TID)
     Route: 065
     Dates: end: 201309

REACTIONS (3)
  - Product use in unapproved indication [Recovered/Resolved]
  - Atrophy [Unknown]
  - Epilepsy [Unknown]

NARRATIVE: CASE EVENT DATE: 201309
